FAERS Safety Report 8434396-0 (Version None)
Quarter: 2012Q2

REPORT INFORMATION
  Report Type: 
  Country: None (occurrence: None)
  Receive Date: 20120613
  Receipt Date: 20120524
  Transmission Date: 20120825
  Serious: Yes (Other)
  Sender: FDA-Public Use
  Company Number: PHHY2012CN044732

PATIENT
  Age: 57 Year
  Sex: Male

DRUGS (1)
  1. MYFORTIC [Suspect]
     Indication: PROPHYLAXIS AGAINST TRANSPLANT REJECTION
     Dosage: 180 MG, 3 TABLES IN MORNING AND 3 TABLETS IN EVENING
     Route: 048
     Dates: start: 20120301, end: 20120516

REACTIONS (2)
  - BONE MARROW DISORDER [None]
  - ANAEMIA [None]
